FAERS Safety Report 16329250 (Version 1)
Quarter: 2019Q2

REPORT INFORMATION
  Report Type: Spontaneous
  Country: US (occurrence: US)
  Receive Date: 20190520
  Receipt Date: 20190520
  Transmission Date: 20190711
  Serious: No
  Sender: FDA-Public Use
  Company Number: US-BION-007487

PATIENT
  Age: 64 Year
  Sex: Male
  Weight: 131.54 kg

DRUGS (2)
  1. LISINOPRIL PREVENTIS [Concomitant]
     Dosage: STRENGTH: 20 MG
  2. MOTRIN IB [Suspect]
     Active Substance: IBUPROFEN
     Indication: PAIN
     Dosage: 3 CAPLETS ONCE
     Route: 048

REACTIONS (3)
  - Facial pain [Recovered/Resolved]
  - Incorrect dose administered [Not Recovered/Not Resolved]
  - Feeling abnormal [Recovered/Resolved]
